FAERS Safety Report 10614685 (Version 1)
Quarter: 2014Q4

REPORT INFORMATION
  Report Type: Spontaneous
  Country: SK (occurrence: SK)
  Receive Date: 20141201
  Receipt Date: 20141201
  Transmission Date: 20150529
  Serious: Yes (Other)
  Sender: FDA-Public Use
  Company Number: SK-AMGEN-SVKSP2014091975

PATIENT
  Age: 63 Year
  Sex: Female
  Weight: 50 kg

DRUGS (2)
  1. CALCIUM +VIT D [Concomitant]
     Active Substance: CALCIUM\VITAMIN D
     Indication: OSTEOPOROSIS POSTMENOPAUSAL
     Dosage: 500/400 MG
     Route: 048
  2. PROLIA [Suspect]
     Active Substance: DENOSUMAB
     Indication: OSTEOPOROSIS POSTMENOPAUSAL
     Route: 065
     Dates: start: 20140701, end: 20140701

REACTIONS (1)
  - Osteonecrosis of jaw [Unknown]

NARRATIVE: CASE EVENT DATE: 20141103
